FAERS Safety Report 15169783 (Version 1)
Quarter: 2018Q3

REPORT INFORMATION
  Report Type: Spontaneous
  Country: US (occurrence: US)
  Receive Date: 20180720
  Receipt Date: 20180720
  Transmission Date: 20181010
  Serious: No
  Sender: FDA-Public Use
  Company Number: US-JNJFOC-20180625742

PATIENT
  Age: 82 Year
  Sex: Female

DRUGS (2)
  1. IMODIUM A?D [Suspect]
     Active Substance: LOPERAMIDE HYDROCHLORIDE
     Route: 065
  2. IMODIUM A?D [Suspect]
     Active Substance: LOPERAMIDE HYDROCHLORIDE
     Indication: DIARRHOEA
     Dosage: 30 ML FIRST TIME, 15 ML AFTER THAT, NOT EXCEEDING 60 ML
     Route: 065
     Dates: start: 20180615

REACTIONS (2)
  - Drug ineffective [Unknown]
  - Thirst [Unknown]

NARRATIVE: CASE EVENT DATE: 2018
